FAERS Safety Report 5366439-5 (Version None)
Quarter: 2007Q2

REPORT INFORMATION
  Report Type: 
  Country: None (occurrence: None)
  Receive Date: 20070622
  Receipt Date: 20070611
  Transmission Date: 20071010
  Serious: Yes (Other)
  Sender: FDA-Public Use
  Company Number: PT-JNJFOC-20070603897

PATIENT
  Sex: Male

DRUGS (3)
  1. REMINYL [Suspect]
     Indication: DEMENTIA
  2. TRANQUILIZER [Concomitant]
  3. NARCOLEPTICS [Concomitant]

REACTIONS (1)
  - PRURITUS [None]
